FAERS Safety Report 16362659 (Version 2)
Quarter: 2019Q2

REPORT INFORMATION
  Report Type: Report from Study
  Country: US (occurrence: US)
  Receive Date: 20190528
  Receipt Date: 20190529
  Transmission Date: 20190711
  Serious: Yes (Hospitalization, Other)
  Sender: FDA-Public Use
  Company Number: US-PFIZER INC-2019222747

PATIENT
  Sex: Female

DRUGS (2)
  1. MISOPROSTOL. [Suspect]
     Active Substance: MISOPROSTOL
     Indication: ABORTION
     Dosage: 800 UG, UNK (800 MCG VAGINALLY FOR ABORTION FROM 64-70 DAYS)
     Route: 067
  2. MIFEPRISTONE [Suspect]
     Active Substance: MIFEPRISTONE
     Indication: ABORTION
     Dosage: 200 MG, UNK, (FOLLOWED 24-48H LATER BY MISOPROSTOL)
     Route: 048

REACTIONS (2)
  - Sepsis [Unknown]
  - Pelvic infection [Unknown]
